FAERS Safety Report 7094020-9 (Version None)
Quarter: 2010Q4

REPORT INFORMATION
  Report Type: 
  Country: None (occurrence: None)
  Receive Date: 20101110
  Receipt Date: 20101101
  Transmission Date: 20110411
  Serious: Yes (Hospitalization)
  Sender: FDA-Public Use
  Company Number: US-ASTRAZENECA-2010SE52064

PATIENT
  Sex: Male

DRUGS (8)
  1. SEROQUEL [Suspect]
     Indication: DEPRESSION
     Route: 048
  2. SEROQUEL [Suspect]
     Indication: AFFECTIVE DISORDER
     Route: 048
  3. KEPPRA [Concomitant]
  4. PANTOPRAZOLE [Concomitant]
  5. LOPERAMIDE [Concomitant]
  6. TINCTURE OF OPIUM [Concomitant]
  7. MELATONIN [Concomitant]
  8. TACROLIMUS [Concomitant]

REACTIONS (1)
  - GRAFT ISCHAEMIA [None]
